FAERS Safety Report 4458028-1 (Version None)
Quarter: 2004Q3

REPORT INFORMATION
  Report Type: 
  Country: None (occurrence: None)
  Receive Date: 20040922
  Receipt Date: 20040903
  Transmission Date: 20050211
  Serious: Yes (Other)
  Sender: FDA-Public Use
  Company Number: GBS040815413

PATIENT
  Age: 72 Year
  Sex: Female

DRUGS (1)
  1. RALOXIFENE HCL [Suspect]
     Indication: OSTEOPOROSIS

REACTIONS (2)
  - POSTMENOPAUSAL HAEMORRHAGE [None]
  - UTERINE POLYP [None]
